FAERS Safety Report 18347502 (Version 1)
Quarter: 2020Q4

REPORT INFORMATION
  Report Type: Spontaneous
  Country: NL (occurrence: NL)
  Receive Date: 20201006
  Receipt Date: 20201006
  Transmission Date: 20210114
  Serious: Yes (Other)
  Sender: FDA-Public Use
  Company Number: NL-TEVA-2020-NL-1834860

PATIENT
  Age: 72 Year
  Sex: Male
  Weight: 83 kg

DRUGS (3)
  1. BECLOMETASON AEROSOL 100UG/DO / QVAR 100 EFA INHALATOR 100MCG/DO SPBS [Concomitant]
     Dosage: 100 UG / DOSE (MICROGRAMS PER DOSE)
  2. NIFEDIPINE TABLET MGA 30MG / BRAND NAME NOT SPECIFIED [Suspect]
     Active Substance: NIFEDIPINE
     Indication: HYPERTENSION
     Dosage: 30 MILLIGRAM DAILY;
     Dates: start: 20200208, end: 20200617
  3. BECLOMETASON/FORMOTEROL AEROSOL 100/6UG/DO / FOSTER AEROSOL 100/6MCG/D [Concomitant]
     Dosage: 1 DOSAGE FORMS DAILY; INHALER

REACTIONS (8)
  - Dizziness [Not Recovered/Not Resolved]
  - Erectile dysfunction [Not Recovered/Not Resolved]
  - Peripheral swelling [Not Recovered/Not Resolved]
  - Tremor [Not Recovered/Not Resolved]
  - Fatigue [Unknown]
  - Abdominal discomfort [Not Recovered/Not Resolved]
  - Pruritus [Not Recovered/Not Resolved]
  - Paraesthesia [Not Recovered/Not Resolved]

NARRATIVE: CASE EVENT DATE: 20200211
